FAERS Safety Report 10671667 (Version 3)
Quarter: 2015Q3

REPORT INFORMATION
  Report Type: Spontaneous
  Country: US (occurrence: US)
  Receive Date: 20141223
  Receipt Date: 20150707
  Transmission Date: 20151125
  Serious: Yes (Hospitalization)
  Sender: FDA-Public Use
  Company Number: US-BAYER-2014-188518

PATIENT
  Age: 27 Year
  Sex: Female
  Weight: 59 kg

DRUGS (3)
  1. PAXIL [Concomitant]
     Active Substance: PAROXETINE HYDROCHLORIDE
     Dosage: 20 MG, EVENINGS
  2. TOPAMAX [Concomitant]
     Active Substance: TOPIRAMATE
  3. MIRENA [Suspect]
     Active Substance: LEVONORGESTREL
     Indication: CONTRACEPTION
     Dosage: 20 MCG/24HR, CONT
     Route: 015
     Dates: start: 20081217, end: 20090903

REACTIONS (8)
  - Anxiety [None]
  - Back pain [None]
  - Emotional distress [None]
  - Uterine perforation [None]
  - Depression [None]
  - Menstruation irregular [None]
  - Injury [None]
  - Pain [None]

NARRATIVE: CASE EVENT DATE: 20090824
